FAERS Safety Report 7716188-0 (Version None)
Quarter: 2011Q3

REPORT INFORMATION
  Report Type: 
  Country: None (occurrence: None)
  Receive Date: 20110823
  Receipt Date: 20110808
  Transmission Date: 20111222
  Serious: Yes (Hospitalization)
  Sender: FDA-Public Use
  Company Number: JP-2011-11157

PATIENT
  Age: 82 Year
  Sex: Male
  Weight: 54 kg

DRUGS (8)
  1. ONON (PRANLUKAST HYDRATE) [Concomitant]
  2. ALLOPURINOL [Concomitant]
  3. FUROSEMIDE [Concomitant]
  4. LOSARTAN POTASSIUM [Concomitant]
  5. SAMSCA [Suspect]
     Indication: CARDIAC FAILURE
     Dosage: 7.5 MG MILLIGRAM(S), QD, ORAL ; 15 MG MILLIGRAM(S), QD, ORAL ; 15 MG MILLIGRAM(S), QD, ORAL
     Route: 048
     Dates: start: 20110618, end: 20110622
  6. SAMSCA [Suspect]
     Indication: CARDIAC FAILURE
     Dosage: 7.5 MG MILLIGRAM(S), QD, ORAL ; 15 MG MILLIGRAM(S), QD, ORAL ; 15 MG MILLIGRAM(S), QD, ORAL
     Route: 048
     Dates: start: 20110705, end: 20110705
  7. SAMSCA [Suspect]
     Indication: CARDIAC FAILURE
     Dosage: 7.5 MG MILLIGRAM(S), QD, ORAL ; 15 MG MILLIGRAM(S), QD, ORAL ; 15 MG MILLIGRAM(S), QD, ORAL
     Route: 048
     Dates: start: 20110623, end: 20110624
  8. OMEPRAZOLE [Concomitant]

REACTIONS (2)
  - EMBOLIC CEREBRAL INFARCTION [None]
  - DEHYDRATION [None]
